FAERS Safety Report 15649810 (Version 2)
Quarter: 2018Q4

REPORT INFORMATION
  Report Type: Spontaneous
  Country: JP (occurrence: JP)
  Receive Date: 20181123
  Receipt Date: 20181128
  Transmission Date: 20190205
  Serious: Yes (Other)
  Sender: FDA-Public Use
  Company Number: PHJP2018JP019822

PATIENT
  Age: 56 Year
  Sex: Female

DRUGS (3)
  1. ZYKADIA [Suspect]
     Active Substance: CERITINIB
     Indication: LUNG ADENOCARCINOMA STAGE III
     Dosage: 750 MG, QD
     Route: 048
     Dates: start: 201804
  2. ZYKADIA [Suspect]
     Active Substance: CERITINIB
     Dosage: 450 MG, UNK
     Route: 048
  3. ZYKADIA [Suspect]
     Active Substance: CERITINIB
     Dosage: 600 MG, UNK
     Route: 048

REACTIONS (7)
  - Nausea [Recovered/Resolved]
  - Lung adenocarcinoma stage III [Unknown]
  - Malignant neoplasm progression [Unknown]
  - Abdominal pain upper [Unknown]
  - Abdominal pain [Recovered/Resolved]
  - Diarrhoea [Recovered/Resolved]
  - Abdominal pain upper [Recovered/Resolved]

NARRATIVE: CASE EVENT DATE: 201804
